APPROVED DRUG PRODUCT: SEPTOCAINE
Active Ingredient: ARTICAINE HYDROCHLORIDE; EPINEPHRINE BITARTRATE
Strength: 4%; EQ 0.0085MG BASE/1.7ML (4%; EQ 0.005MG BASE/ML)
Dosage Form/Route: INJECTABLE;INJECTION
Application: N020971 | Product #002
Applicant: DEPROCO INC
Approved: Mar 30, 2006 | RLD: Yes | RS: Yes | Type: RX